FAERS Safety Report 7359158-7 (Version None)
Quarter: 2011Q1

REPORT INFORMATION
  Report Type: 
  Country: None (occurrence: None)
  Receive Date: 20110317
  Receipt Date: 20110308
  Transmission Date: 20110831
  Serious: Yes (Hospitalization)
  Sender: FDA-Public Use
  Company Number: US-ASTRAZENECA-2011SE12925

PATIENT
  Age: 43 Year
  Sex: Male
  Weight: 82.6 kg

DRUGS (5)
  1. SEROQUEL [Suspect]
     Dosage: CUTTING THE TABLETS.
     Route: 048
  2. SEROQUEL [Suspect]
     Route: 048
     Dates: end: 20100601
  3. SEROQUEL [Suspect]
     Indication: SCHIZOAFFECTIVE DISORDER
     Dosage: STARTED BETWEEN 4 AND 10 YEARS AGO.
     Route: 048
  4. SEROQUEL [Suspect]
     Route: 048
     Dates: start: 20110307
  5. MOTRIN [Concomitant]
     Indication: BACK PAIN
     Dosage: AS REQUIRED.

REACTIONS (8)
  - INCREASED APPETITE [None]
  - WRONG TECHNIQUE IN DRUG USAGE PROCESS [None]
  - PARANOIA [None]
  - HALLUCINATION [None]
  - IMPAIRED WORK ABILITY [None]
  - DRUG DOSE OMISSION [None]
  - TACHYPHRENIA [None]
  - PSYCHOTIC DISORDER [None]
